FAERS Safety Report 14249173 (Version 1)
Quarter: 2017Q4

REPORT INFORMATION
  Report Type: Report from Study
  Country: CA (occurrence: CA)
  Receive Date: 20171204
  Receipt Date: 20171204
  Transmission Date: 20180321
  Serious: Yes (Death)
  Sender: FDA-Public Use
  Company Number: CA-ACTELION-A-US2017-163171

PATIENT
  Age: 76 Year
  Sex: Male

DRUGS (24)
  1. SIMVASTATIN. [Concomitant]
     Active Substance: SIMVASTATIN
  2. INSULIN [Concomitant]
     Active Substance: INSULIN NOS
  3. ALLOPURINOL. [Concomitant]
     Active Substance: ALLOPURINOL
  4. METOPROLOL. [Concomitant]
     Active Substance: METOPROLOL
  5. SPIRIVA [Concomitant]
     Active Substance: TIOTROPIUM BROMIDE MONOHYDRATE
  6. OXAZEPAM. [Concomitant]
     Active Substance: OXAZEPAM
  7. ZAROXOLYN [Concomitant]
     Active Substance: METOLAZONE
  8. DICETEL [Concomitant]
     Active Substance: PINAVERIUM BROMIDE
  9. RABEPRAZOLE [Concomitant]
     Active Substance: RABEPRAZOLE
  10. NASONEX [Concomitant]
     Active Substance: MOMETASONE FUROATE
  11. ASA [Concomitant]
     Active Substance: ASPIRIN
  12. INSPRA [Concomitant]
     Active Substance: EPLERENONE
  13. IRON [Concomitant]
     Active Substance: IRON
  14. ODAN K [Concomitant]
  15. ADVAIR HFA [Concomitant]
     Active Substance: FLUTICASONE PROPIONATE\SALMETEROL XINAFOATE
  16. FUROSEMIDE. [Concomitant]
     Active Substance: FUROSEMIDE
  17. LIPIDIL [Concomitant]
     Active Substance: FENOFIBRATE
  18. VITAMIN D [Concomitant]
     Active Substance: CHOLECALCIFEROL
  19. VENTOLIN [Concomitant]
     Active Substance: ALBUTEROL SULFATE
  20. ADCIRCA [Concomitant]
     Active Substance: TADALAFIL
  21. IRBESARTAN. [Concomitant]
     Active Substance: IRBESARTAN
  22. XARELTO [Concomitant]
     Active Substance: RIVAROXABAN
  23. MULTIVITAMIN [Concomitant]
     Active Substance: VITAMINS
  24. TRACLEER [Suspect]
     Active Substance: BOSENTAN
     Indication: PULMONARY ARTERIAL HYPERTENSION
     Dosage: 125 MG, BID
     Route: 048
     Dates: start: 20160127

REACTIONS (1)
  - Cardiac failure [Fatal]

NARRATIVE: CASE EVENT DATE: 201711
